FAERS Safety Report 21819766 (Version 2)
Quarter: 2023Q1

REPORT INFORMATION
  Report Type: Spontaneous
  Country: DE (occurrence: DE)
  Receive Date: 20230104
  Receipt Date: 20230304
  Transmission Date: 20230418
  Serious: Yes (Other)
  Sender: FDA-Public Use
  Company Number: DE-002147023-NVSC2021DE054533

PATIENT
  Sex: Female
  Weight: 71 kg

DRUGS (21)
  1. AIMOVIG [Suspect]
     Active Substance: ERENUMAB-AOOE
     Indication: Migraine
     Dosage: 70 MILLIGRAM, UNK
     Route: 065
     Dates: start: 202007
  2. AIMOVIG [Suspect]
     Active Substance: ERENUMAB-AOOE
     Dosage: UNK, (EVERY 24 DAYS)
     Route: 065
     Dates: start: 202209
  3. NEUPRO [Concomitant]
     Active Substance: ROTIGOTINE
     Indication: Restless legs syndrome
     Dosage: 1 MILLIGRAM,  (PATCH)
     Route: 065
  4. NEUPRO [Concomitant]
     Active Substance: ROTIGOTINE
     Dosage: 2 MILLIGRAM,  (PATCH)
     Route: 065
  5. NEUPRO [Concomitant]
     Active Substance: ROTIGOTINE
     Dosage: UNK, (ONE PATCH)
     Route: 065
     Dates: start: 202111
  6. Kalymin [Concomitant]
     Indication: Product used for unknown indication
     Dosage: 3 DOSAGE FORM, (1-1-1-1-0)
     Route: 065
     Dates: start: 20000501
  7. ESOMEPRAZOLE [Concomitant]
     Active Substance: ESOMEPRAZOLE
     Indication: Product used for unknown indication
     Dosage: 1 DOSAGE FORM, (1-0-0-0-0)
     Route: 065
     Dates: start: 2004
  8. EISENTABLETTEN RATIOPHARM N [Concomitant]
     Indication: Product used for unknown indication
     Dosage: 1 DOSAGE FORM (0-0-0-0-1)
     Route: 065
     Dates: start: 2021
  9. GABAPENTIN [Concomitant]
     Active Substance: GABAPENTIN
     Indication: Product used for unknown indication
     Dosage: 1 DOSAGE FORM (1-0-1-0-1)
     Route: 065
     Dates: start: 2015
  10. CHOLECALCIFEROL [Concomitant]
     Active Substance: CHOLECALCIFEROL
     Indication: Product used for unknown indication
     Dosage: 1 DOSAGE FORM (1-0-0-0-0)
     Route: 065
     Dates: start: 2016
  11. FOLIC ACID [Concomitant]
     Active Substance: FOLIC ACID
     Indication: Product used for unknown indication
     Dosage: 1 DOSAGE FORM (1-0-0-0-0)
     Route: 065
     Dates: start: 2018
  12. DOMPERIDONE [Concomitant]
     Active Substance: DOMPERIDONE
     Indication: Product used for unknown indication
     Dosage: 1 DOSAGE FORM (0-0-0-1-0)
     Route: 065
     Dates: start: 2019
  13. HYALURONATE SODIUM [Concomitant]
     Active Substance: HYALURONATE SODIUM
     Indication: Product used for unknown indication
     Dosage: UNK (ABOUT 5 X DAILY AS NEEDED )
     Route: 065
  14. VITAMIN B12 [Concomitant]
     Active Substance: CYANOCOBALAMIN
     Indication: Product used for unknown indication
     Dosage: 1 DOSAGE FORM, QMO
     Route: 030
  15. HIZENTRA [Concomitant]
     Active Substance: HUMAN IMMUNOGLOBULIN G
     Indication: Product used for unknown indication
     Dosage: 8 DOSAGE FORM, QMO
     Route: 058
  16. HIZENTRA [Concomitant]
     Active Substance: HUMAN IMMUNOGLOBULIN G
     Dosage: 10 GRAM, 8 X MONTHLY OVER 3 HOURS
     Route: 065
  17. ENOXAPARIN SODIUM [Concomitant]
     Active Substance: ENOXAPARIN SODIUM
     Indication: Product used for unknown indication
     Dosage: 8 DOSAGE FORM, QMO
     Route: 065
  18. METAMIZOL [Concomitant]
     Active Substance: METAMIZOLE SODIUM
     Indication: Product used for unknown indication
     Dosage: UNK, PRN
     Route: 065
  19. SUMATRIPTAN [Concomitant]
     Active Substance: SUMATRIPTAN
     Indication: Product used for unknown indication
     Dosage: UNK, PRN
     Route: 065
  20. METOCLOPRAMIDE [Concomitant]
     Active Substance: METOCLOPRAMIDE
     Indication: Product used for unknown indication
     Dosage: UNK, PRN
     Route: 065
  21. Dysurgal [Concomitant]
     Indication: Product used for unknown indication
     Dosage: UNK
     Route: 065

REACTIONS (6)
  - Migraine [Not Recovered/Not Resolved]
  - Inappropriate schedule of product administration [Unknown]
  - Drug ineffective [Unknown]
  - Device issue [Unknown]
  - Product prescribing issue [Unknown]
  - Product storage error [Unknown]

NARRATIVE: CASE EVENT DATE: 20200101
